FAERS Safety Report 15159481 (Version 2)
Quarter: 2018Q3

REPORT INFORMATION
  Report Type: Report from Study
  Country: CA (occurrence: CA)
  Receive Date: 20180718
  Receipt Date: 20180821
  Transmission Date: 20181010
  Serious: Yes (Hospitalization, Other)
  Sender: FDA-Public Use
  Company Number: CA-JNJFOC-20180702542

PATIENT
  Age: 64 Year
  Sex: Female
  Weight: 48.99 kg

DRUGS (2)
  1. REMICADE [Suspect]
     Active Substance: INFLIXIMAB
     Indication: CROHN^S DISEASE
     Route: 042
     Dates: start: 20101015
  2. REMICADE [Suspect]
     Active Substance: INFLIXIMAB
     Indication: CROHN^S DISEASE
     Dosage: STRENGTH = 100 MG, RECEIVED 61ST INFUSION 600 MG ONCE EVERY 4 WEEKS ON 14?AUG?2018
     Route: 042

REACTIONS (5)
  - Chronic obstructive pulmonary disease [Recovering/Resolving]
  - Pneumonia [Recovering/Resolving]
  - Abdominal pain [Unknown]
  - General physical health deterioration [Unknown]
  - Frequent bowel movements [Unknown]

NARRATIVE: CASE EVENT DATE: 20180629
